FAERS Safety Report 13779838 (Version 1)
Quarter: 2017Q3

REPORT INFORMATION
  Report Type: Report from Study
  Country: BR (occurrence: BR)
  Receive Date: 20170723
  Receipt Date: 20170723
  Transmission Date: 20171127
  Serious: No
  Sender: FDA-Public Use
  Company Number: BR-EMD SERONO-8167791

PATIENT
  Sex: Female

DRUGS (1)
  1. REBIF [Suspect]
     Active Substance: INTERFERON BETA-1A
     Indication: MULTIPLE SCLEROSIS
     Route: 058
     Dates: start: 20080301

REACTIONS (15)
  - Paraesthesia [Unknown]
  - Feeling abnormal [Unknown]
  - Somnolence [Unknown]
  - Palpitations [Unknown]
  - Asthenia [Unknown]
  - Visual impairment [Unknown]
  - Dizziness [Unknown]
  - Hypoaesthesia [Unknown]
  - Neck pain [Unknown]
  - Eye pain [Unknown]
  - Nausea [Unknown]
  - Fatigue [Unknown]
  - Dysphagia [Unknown]
  - Chest discomfort [Unknown]
  - Sensory disturbance [Unknown]
